FAERS Safety Report 16568689 (Version 2)
Quarter: 2019Q3

REPORT INFORMATION
  Report Type: Report from Study
  Country: None (occurrence: GR)
  Receive Date: 20190713
  Receipt Date: 20190715
  Transmission Date: 20191004
  Serious: Yes (Death)
  Sender: FDA-Public Use
  Company Number: GR-ABBVIE-19K-066-2852226-00

PATIENT
  Age: 77 Year
  Sex: Male
  Weight: 67 kg

DRUGS (4)
  1. DUODOPA [Suspect]
     Active Substance: CARBIDOPA\LEVODOPA
     Indication: PARKINSON^S DISEASE
     Dosage: MD:6.4ML; CD:2.4ML/H; ED:1.2ML
     Route: 050
     Dates: start: 20160627
  2. SEROPRAM [Concomitant]
     Indication: DEPRESSION
     Route: 048
     Dates: start: 20190315
  3. SEROPRAM [Concomitant]
     Indication: ANXIETY
  4. MADOPAR [Concomitant]
     Active Substance: BENSERAZIDE HYDROCHLORIDE\LEVODOPA
     Indication: PRODUCT USED FOR UNKNOWN INDICATION
     Dosage: ONCE EVERY NIGHT
     Route: 048

REACTIONS (1)
  - Cardiac arrest [Fatal]

NARRATIVE: CASE EVENT DATE: 20190710
